FAERS Safety Report 6701117-9 (Version None)
Quarter: 2010Q2

REPORT INFORMATION
  Report Type: 
  Country: None (occurrence: None)
  Receive Date: 20100428
  Receipt Date: 20100428
  Transmission Date: 20101027
  Serious: Yes (Life-Threatening, Hospitalization, Other)
  Sender: FDA-Public Use
  Company Number: None

PATIENT
  Age: 30 Year
  Sex: Female
  Weight: 58.9676 kg

DRUGS (2)
  1. DEPAKOTE ER [Suspect]
     Indication: MOOD SWINGS
     Dosage: 2X 500MG QHS PO
     Route: 048
     Dates: start: 19990424, end: 20090919
  2. CYMBALTA [Suspect]
     Indication: DEPRESSION
     Dosage: 60MG QHS PO
     Route: 048

REACTIONS (18)
  - ABNORMAL BEHAVIOUR [None]
  - ALCOHOL USE [None]
  - AMNESIA [None]
  - ECONOMIC PROBLEM [None]
  - FEELING ABNORMAL [None]
  - IMPAIRED DRIVING ABILITY [None]
  - INJURY [None]
  - LOSS OF CONSCIOUSNESS [None]
  - MENTAL IMPAIRMENT [None]
  - MIGRAINE [None]
  - MOOD ALTERED [None]
  - NIGHTMARE [None]
  - ROAD TRAFFIC ACCIDENT [None]
  - TOBACCO USER [None]
  - UNEVALUABLE EVENT [None]
  - URINARY INCONTINENCE [None]
  - VOMITING [None]
  - WITHDRAWAL SYNDROME [None]
